FAERS Safety Report 9891907 (Version 1)
Quarter: 2014Q1

REPORT INFORMATION
  Report Type: Spontaneous
  Country: US (occurrence: None)
  Receive Date: 20140210
  Receipt Date: 20140210
  Transmission Date: 20141002
  Serious: Yes (Hospitalization)
  Sender: FDA-Public Use
  Company Number: US-ZYDUS-002490

PATIENT
  Age: 27 Year
  Sex: Male

DRUGS (2)
  1. FLUOXETINE (FLUOXETINE) [Suspect]
     Indication: DEPRESSION
  2. QUETIAPINE (QUETIAPINE) [Suspect]
     Indication: DEPRESSION

REACTIONS (5)
  - Loss of consciousness [None]
  - Intentional overdose [None]
  - Suicide attempt [None]
  - Caesarean section [None]
  - Exposure during pregnancy [None]
